FAERS Safety Report 4563981-1 (Version None)
Quarter: 2005Q1

REPORT INFORMATION
  Report Type: 
  Country: None (occurrence: None)
  Receive Date: 20050128
  Receipt Date: 20050118
  Transmission Date: 20050727
  Serious: Yes (Other)
  Sender: FDA-Public Use
  Company Number: GB-JNJFOC-20050104489

PATIENT
  Age: 18 Year
  Sex: Female

DRUGS (5)
  1. ORTHO EVRA [Suspect]
     Indication: CONTRACEPTION
     Route: 062
  2. ESCITALOPRAM [Concomitant]
     Indication: DEPRESSION
     Route: 049
  3. CLARITHROMYCIN [Concomitant]
     Indication: URINARY TRACT INFECTION
     Route: 049
     Dates: start: 20041119, end: 20041126
  4. LEVONORGESTREL AND ETHINYL ESTRADIOL [Concomitant]
     Route: 049
     Dates: start: 20041019, end: 20041219
  5. LEVONORGESTREL AND ETHINYL ESTRADIOL [Concomitant]
     Indication: CONTRACEPTION
     Route: 049
     Dates: start: 20041019, end: 20041219

REACTIONS (1)
  - ANAPHYLACTIC REACTION [None]
